FAERS Safety Report 5361049-8 (Version None)
Quarter: 2007Q2

REPORT INFORMATION
  Report Type: 
  Country: None (occurrence: None)
  Receive Date: 20070618
  Receipt Date: 20070607
  Transmission Date: 20071010
  Serious: Yes (Other)
  Sender: FDA-Public Use
  Company Number: US-PFIZER INC-2007047585

PATIENT
  Sex: Male

DRUGS (1)
  1. BEXTRA [Suspect]
     Dates: start: 20020731, end: 20041101

REACTIONS (7)
  - ARRHYTHMIA [None]
  - CEREBROVASCULAR ACCIDENT [None]
  - MYOCARDIAL INFARCTION [None]
  - ORGAN FAILURE [None]
  - PULMONARY EMBOLISM [None]
  - STEVENS-JOHNSON SYNDROME [None]
  - THROMBOSIS [None]
